FAERS Safety Report 24903004 (Version 6)
Quarter: 2025Q2

REPORT INFORMATION
  Report Type: Report from Study
  Country: US (occurrence: US)
  Receive Date: 20250130
  Receipt Date: 20250612
  Transmission Date: 20250716
  Serious: Yes (Hospitalization)
  Sender: TAKEDA
  Company Number: US-TAKEDA-2024TUS129732

PATIENT
  Sex: Male

DRUGS (4)
  1. PONATINIB [Suspect]
     Active Substance: PONATINIB
     Indication: Chronic myeloid leukaemia
     Dosage: 45 MILLIGRAM, QD
  2. PONATINIB [Suspect]
     Active Substance: PONATINIB
     Dosage: 30 MILLIGRAM, QOD
  3. PONATINIB [Suspect]
     Active Substance: PONATINIB
     Dosage: 30 MILLIGRAM, QD
  4. PONATINIB [Suspect]
     Active Substance: PONATINIB
     Dosage: 15 MILLIGRAM, QD

REACTIONS (17)
  - Hypoacusis [Unknown]
  - Nausea [Unknown]
  - Vision blurred [Unknown]
  - Skin exfoliation [Unknown]
  - Fatigue [Unknown]
  - Dyspnoea [Unknown]
  - Asthenia [Unknown]
  - Pyrexia [Unknown]
  - Lacrimation increased [Unknown]
  - Iritis [Unknown]
  - Off label use [Unknown]
  - Product dose omission issue [Unknown]
  - Ocular hyperaemia [Unknown]
  - Bone pain [Unknown]
  - Night sweats [Unknown]
  - Abdominal pain upper [Unknown]
  - Arthralgia [Unknown]
